FAERS Safety Report 8718380 (Version 2)
Quarter: 2012Q4

REPORT INFORMATION
  Report Type: 
  Country: US (occurrence: US)
  Receive Date: 20120810
  Receipt Date: 20120919
  Transmission Date: 20130627
  Serious: No
  Sender: FDA-Public Use
  Company Number: US-ASTRAZENECA-2012SE48253

PATIENT
  Age: 54 Year
  Sex: Female

DRUGS (6)
  1. CRESTOR [Suspect]
     Indication: BLOOD CHOLESTEROL ABNORMAL
     Route: 048
     Dates: start: 20111006, end: 20120228
  2. LASIX [Suspect]
     Indication: OEDEMA
     Route: 065
     Dates: start: 20100714
  3. METFORMIN [Concomitant]
  4. OTHER MEDICATIONS [Concomitant]
  5. INDERAL LA [Concomitant]
     Dates: start: 20100714
  6. PREVACID [Concomitant]
     Indication: GASTROOESOPHAGEAL REFLUX DISEASE
     Dates: start: 20100714

REACTIONS (6)
  - Renal failure [Recovered/Resolved with Sequelae]
  - Diabetes mellitus [Unknown]
  - Creatinine renal clearance decreased [Unknown]
  - Blood creatinine increased [Unknown]
  - Dehydration [Unknown]
  - Diarrhoea [Unknown]
